FAERS Safety Report 4893482-2 (Version None)
Quarter: 2006Q1

REPORT INFORMATION
  Report Type: 
  Country: None (occurrence: None)
  Receive Date: 20060127
  Receipt Date: 20050719
  Transmission Date: 20060701
  Serious: No
  Sender: FDA-Public Use
  Company Number: US-BRISTOL-MYERS SQUIBB COMPANY-13043427

PATIENT
  Age: 52 Year
  Sex: Female
  Weight: 50 kg

DRUGS (1)
  1. KENALOG [Suspect]
     Indication: TEMPOROMANDIBULAR JOINT SYNDROME
     Route: 030
     Dates: start: 20050413, end: 20050413

REACTIONS (1)
  - ATROPHY [None]
